FAERS Safety Report 9807116 (Version 2)
Quarter: 2014Q1

REPORT INFORMATION
  Report Type: Report from Study
  Country: US (occurrence: US)
  Receive Date: 20140110
  Receipt Date: 20140110
  Transmission Date: 20141002
  Serious: Yes (Other)
  Sender: FDA-Public Use
  Company Number: US-ROCHE-1247507

PATIENT
  Age: 73 Year
  Sex: Female
  Weight: 59.47 kg

DRUGS (3)
  1. XELODA [Suspect]
     Indication: BREAST CANCER METASTATIC
     Route: 048
     Dates: start: 20130101
  2. XELODA [Suspect]
     Dosage: EVERY AM AND PM
     Route: 048
     Dates: start: 20130327
  3. XELODA [Suspect]
     Route: 048
     Dates: start: 20130401

REACTIONS (6)
  - Increased upper airway secretion [Not Recovered/Not Resolved]
  - Sensation of pressure [Not Recovered/Not Resolved]
  - Visual impairment [Not Recovered/Not Resolved]
  - Fatigue [Not Recovered/Not Resolved]
  - Pyrexia [Not Recovered/Not Resolved]
  - Nasopharyngitis [Not Recovered/Not Resolved]
